FAERS Safety Report 17920657 (Version 1)
Quarter: 2020Q2

REPORT INFORMATION
  Report Type: Report from Study
  Country: CA (occurrence: CA)
  Receive Date: 20200621
  Receipt Date: 20200621
  Transmission Date: 20200714
  Serious: Yes (Other)
  Sender: FDA-Public Use
  Company Number: PHHY2015CA078929

PATIENT
  Age: 36 Year
  Sex: Female
  Weight: 76.02 kg

DRUGS (3)
  1. CORTEF [Concomitant]
     Active Substance: HYDROCORTISONE
     Indication: PRODUCT USED FOR UNKNOWN INDICATION
     Dosage: 10 MG, QD
     Route: 048
     Dates: start: 201612, end: 20180501
  2. SANDOSTATIN LAR DEPOT [Suspect]
     Active Substance: OCTREOTIDE ACETATE
     Indication: ACROMEGALY
     Dosage: 30 MG, QMO (EVERY 4 WEEKS)
     Route: 030
     Dates: start: 20040601
  3. SANDOSTATIN LAR DEPOT [Suspect]
     Active Substance: OCTREOTIDE ACETATE
     Dosage: 30 MG, QMO
     Route: 030

REACTIONS (39)
  - Acne [Recovered/Resolved]
  - Heart rate decreased [Unknown]
  - Stress [Unknown]
  - Urinary incontinence [Unknown]
  - Nasopharyngitis [Unknown]
  - Blood pressure diastolic decreased [Unknown]
  - Back pain [Unknown]
  - Fatigue [Unknown]
  - Abdominal pain upper [Recovered/Resolved]
  - Asthenia [Unknown]
  - Breast tenderness [Unknown]
  - Injection site pain [Unknown]
  - Blood testosterone increased [Recovered/Resolved]
  - Productive cough [Unknown]
  - Hypotension [Unknown]
  - Nausea [Recovered/Resolved]
  - Needle issue [Unknown]
  - Pyrexia [Recovered/Resolved]
  - Myalgia [Unknown]
  - Hot flush [Recovered/Resolved]
  - Blood pressure systolic decreased [Unknown]
  - Breast enlargement [Unknown]
  - Pain [Recovering/Resolving]
  - Body temperature decreased [Unknown]
  - Weight increased [Unknown]
  - Cough [Unknown]
  - Fatigue [Recovered/Resolved]
  - Abdominal pain lower [Unknown]
  - Wrong technique in product usage process [Unknown]
  - Psychiatric symptom [Unknown]
  - Irritability [Unknown]
  - Acne [Unknown]
  - Headache [Recovered/Resolved]
  - Hypothalamo-pituitary disorder [Unknown]
  - Sinus congestion [Unknown]
  - Somnolence [Unknown]
  - Arthralgia [Unknown]
  - Headache [Not Recovered/Not Resolved]
  - Underdose [Unknown]

NARRATIVE: CASE EVENT DATE: 20150629
